FAERS Safety Report 7010172-0 (Version None)
Quarter: 2010Q3

REPORT INFORMATION
  Report Type: 
  Country: None (occurrence: None)
  Receive Date: 20100923
  Receipt Date: 20100914
  Transmission Date: 20110219
  Serious: Yes (Hospitalization, Other)
  Sender: FDA-Public Use
  Company Number: BR-PFIZER INC-2010016325

PATIENT
  Age: 60 Year
  Sex: Female

DRUGS (10)
  1. FRONTAL [Suspect]
     Indication: DEPRESSION
     Dosage: UNK
     Route: 048
     Dates: start: 20100101
  2. FRONTAL [Suspect]
     Indication: MEMORY IMPAIRMENT
  3. FRONTAL [Suspect]
     Indication: NERVOUSNESS
  4. FRONTAL XR [Suspect]
     Dosage: 1 MG, 1 TABLET, 1X/DAY
     Route: 048
     Dates: start: 20090101
  5. LIPITOR [Suspect]
     Indication: BLOOD CHOLESTEROL INCREASED
     Dosage: 40 MG, 1X/DAY, 1 TABLET
     Route: 048
     Dates: start: 20100414
  6. LYRICA [Suspect]
     Indication: MOOD ALTERED
     Dosage: 150 MG, UNK
  7. LYRICA [Suspect]
     Dosage: 75 MG, 2X/DAY
  8. SIMVASTATIN [Suspect]
     Indication: BLOOD CHOLESTEROL INCREASED
     Dosage: UNK
     Dates: end: 20100101
  9. SIMVASTATIN [Suspect]
     Indication: BLOOD TRIGLYCERIDES INCREASED
  10. BENICAR [Concomitant]
     Indication: HYPERTENSION
     Dosage: 40 MG, UNK
     Dates: start: 20060101

REACTIONS (4)
  - BLOOD PRESSURE FLUCTUATION [None]
  - CHOLELITHIASIS [None]
  - DEPRESSION [None]
  - GASTROINTESTINAL HAEMORRHAGE [None]
